FAERS Safety Report 6662590-8 (Version None)
Quarter: 2010Q1

REPORT INFORMATION
  Report Type: 
  Country: None (occurrence: None)
  Receive Date: 20100329
  Receipt Date: 20100312
  Transmission Date: 20100710
  Serious: Yes (Other)
  Sender: FDA-Public Use
  Company Number: 2010000868

PATIENT
  Sex: Female

DRUGS (2)
  1. TARCEVA [Suspect]
     Indication: METASTATIC NEOPLASM
     Dosage: ORAL
     Route: 048
  2. FENTANYL [Suspect]
     Indication: PAIN
     Dosage: OTHER

REACTIONS (2)
  - DRUG INTERACTION [None]
  - DRUG TOLERANCE [None]
